FAERS Safety Report 6700041-5 (Version None)
Quarter: 2010Q2

REPORT INFORMATION
  Report Type: 
  Country: None (occurrence: None)
  Receive Date: 20100427
  Receipt Date: 20100427
  Transmission Date: 20101027
  Serious: No
  Sender: FDA-Public Use
  Company Number: None

PATIENT
  Age: 69 Year
  Sex: Male

DRUGS (1)
  1. CEFAZOLIN [Suspect]
     Indication: CELLULITIS
     Dosage: 1 GM ONCE IV
     Route: 042
     Dates: start: 20100402, end: 20100402

REACTIONS (2)
  - RASH [None]
  - URTICARIA [None]
